FAERS Safety Report 17616489 (Version 1)
Quarter: 2020Q2

REPORT INFORMATION
  Report Type: Spontaneous
  Country: US (occurrence: US)
  Receive Date: 20200402
  Receipt Date: 20200402
  Transmission Date: 20200713
  Serious: No
  Sender: FDA-Public Use
  Company Number: None

PATIENT
  Age: 84 Year
  Sex: Male
  Weight: 72 kg

DRUGS (6)
  1. METOPROLOL 50MG [Concomitant]
     Active Substance: METOPROLOL
  2. NEOMYCIN AND POLYMYXIN B SULFATES AND HYDROCORTISONE [Suspect]
     Active Substance: HYDROCORTISONE\NEOMYCIN SULFATE\POLYMYXIN B SULFATE
     Indication: TINNITUS
     Route: 001
     Dates: start: 20200327, end: 20200327
  3. ASPIRIN 81MG [Concomitant]
     Active Substance: ASPIRIN
  4. AMLODIPINE 2.5MG [Concomitant]
     Active Substance: AMLODIPINE BESYLATE
  5. TAMSULOSIN 0.4MG [Concomitant]
     Active Substance: TAMSULOSIN
  6. LISINOPRIL. [Concomitant]
     Active Substance: LISINOPRIL

REACTIONS (3)
  - Deafness [None]
  - Loss of personal independence in daily activities [None]
  - Vertigo [None]

NARRATIVE: CASE EVENT DATE: 20200327
